FAERS Safety Report 24576506 (Version 2)
Quarter: 2024Q4

REPORT INFORMATION
  Report Type: Spontaneous
  Country: US (occurrence: US)
  Receive Date: 20241104
  Receipt Date: 20241107
  Transmission Date: 20250115
  Serious: Yes (Other)
  Sender: PFIZER
  Company Number: US-PFIZER INC-202400290062

PATIENT
  Age: 41 Year
  Sex: Female
  Weight: 59.42 kg

DRUGS (1)
  1. OXBRYTA [Suspect]
     Active Substance: VOXELOTOR
     Indication: Sickle cell anaemia
     Dosage: REGULAR DOSE, ACTUAL DOSE UNKNOWN

REACTIONS (11)
  - Seizure [Not Recovered/Not Resolved]
  - Disease recurrence [Not Recovered/Not Resolved]
  - Headache [Not Recovered/Not Resolved]
  - Muscle spasms [Unknown]
  - Pain [Unknown]
  - Joint range of motion decreased [Unknown]
  - Myalgia [Not Recovered/Not Resolved]
  - Spinal deformity [Unknown]
  - Memory impairment [Unknown]
  - Alopecia [Not Recovered/Not Resolved]
  - Back pain [Not Recovered/Not Resolved]
